FAERS Safety Report 6304557-5 (Version None)
Quarter: 2009Q3

REPORT INFORMATION
  Report Type: 
  Country: None (occurrence: None)
  Receive Date: 20090811
  Receipt Date: 20090805
  Transmission Date: 20100115
  Serious: Yes (Other)
  Sender: FDA-Public Use
  Company Number: BE-ABBOTT-09P-013-0576346-00

PATIENT
  Sex: Female

DRUGS (6)
  1. HUMIRA [Suspect]
     Indication: CROHN'S DISEASE
     Dates: start: 20090408
  2. HUMIRA [Suspect]
     Dates: start: 20090428, end: 20090526
  3. HUMIRA [Suspect]
  4. COLITOFALK [Concomitant]
     Indication: DRUG USE FOR UNKNOWN INDICATION
  5. YASMIN [Concomitant]
     Indication: DRUG USE FOR UNKNOWN INDICATION
  6. VIVISCAL [Concomitant]
     Indication: DRUG USE FOR UNKNOWN INDICATION

REACTIONS (36)
  - ABDOMINAL PAIN [None]
  - ABNORMAL SENSATION IN EYE [None]
  - ABSCESS [None]
  - ALOPECIA [None]
  - BODY TEMPERATURE INCREASED [None]
  - BREAST PAIN [None]
  - BREAST SWELLING [None]
  - EAR PAIN [None]
  - ERYTHEMA OF EYELID [None]
  - EYE DISORDER [None]
  - EYE HAEMORRHAGE [None]
  - EYE PAIN [None]
  - EYE SWELLING [None]
  - EYELID OEDEMA [None]
  - FATIGUE [None]
  - GASTROINTESTINAL DISORDER [None]
  - GASTROINTESTINAL INFLAMMATION [None]
  - GINGIVAL BLEEDING [None]
  - HEADACHE [None]
  - HYPOREFLEXIA [None]
  - INJECTION SITE ERYTHEMA [None]
  - INJECTION SITE NODULE [None]
  - INJECTION SITE PAIN [None]
  - MALAISE [None]
  - NAIL AVULSION [None]
  - NAUSEA [None]
  - NIGHT SWEATS [None]
  - ORAL PAIN [None]
  - OROPHARYNGEAL BLISTERING [None]
  - OROPHARYNGEAL PAIN [None]
  - PAIN IN JAW [None]
  - PRURITUS [None]
  - RECTAL HAEMORRHAGE [None]
  - SENSATION OF HEAVINESS [None]
  - VULVOVAGINAL MYCOTIC INFECTION [None]
  - WOUND [None]
